FAERS Safety Report 16907485 (Version 1)
Quarter: 2019Q4

REPORT INFORMATION
  Report Type: Spontaneous
  Country: GR (occurrence: GR)
  Receive Date: 20191011
  Receipt Date: 20191011
  Transmission Date: 20200122
  Serious: Yes (Hospitalization, Other)
  Sender: FDA-Public Use
  Company Number: GR-ALEMBIC PHARMACUETICALS LIMITED-2019SCAL000749

PATIENT

DRUGS (1)
  1. MOXIFLOXACIN. [Suspect]
     Active Substance: MOXIFLOXACIN
     Indication: PNEUMONIA
     Dosage: UNK

REACTIONS (5)
  - Electrocardiogram QT prolonged [Recovered/Resolved]
  - Electrocardiogram R on T phenomenon [Recovered/Resolved]
  - Dyspnoea [Recovered/Resolved]
  - Long QT syndrome [Recovered/Resolved]
  - Chest pain [Recovered/Resolved]
